FAERS Safety Report 11518697 (Version 4)
Quarter: 2015Q4

REPORT INFORMATION
  Report Type: Spontaneous
  Country: US (occurrence: US)
  Receive Date: 20150917
  Receipt Date: 20151215
  Transmission Date: 20160304
  Serious: Yes (Hospitalization, Other)
  Sender: FDA-Public Use
  Company Number: US-PFIZER INC-2015310165

PATIENT
  Age: 87 Year
  Sex: Male
  Weight: 108 kg

DRUGS (5)
  1. REVATIO [Suspect]
     Active Substance: SILDENAFIL CITRATE
     Indication: PULMONARY HYPERTENSION
     Dosage: 20 MG, 3X/DAY
     Route: 048
  2. FUROSEMIDE. [Suspect]
     Active Substance: FUROSEMIDE
     Indication: DIURETIC THERAPY
     Dosage: UNK
  3. SYMBICORT [Concomitant]
     Active Substance: BUDESONIDE\FORMOTEROL FUMARATE DIHYDRATE
     Dosage: ONCE OR TWICE A DAY
  4. POTASSIUM [Concomitant]
     Active Substance: POTASSIUM
     Dosage: 4 TABLETS ONCE A DAY
  5. METOLAZONE. [Suspect]
     Active Substance: METOLAZONE
     Dosage: UNK

REACTIONS (6)
  - Blood potassium decreased [Unknown]
  - Rib fracture [Unknown]
  - Musculoskeletal disorder [Unknown]
  - Pollakiuria [Unknown]
  - Fall [Unknown]
  - Musculoskeletal pain [Unknown]

NARRATIVE: CASE EVENT DATE: 20150909
